FAERS Safety Report 7387278 (Version 4)
Quarter: 2012Q4

REPORT INFORMATION
  Report Type: Report from Study
  Country: NL (occurrence: NL)
  Receive Date: 20100513
  Receipt Date: 20120828
  Transmission Date: 20130627
  Serious: Yes (Hospitalization)
  Sender: FDA-Public Use
  Company Number: NL-BAXTER-2010BH012852

PATIENT
  Age: 58 Year
  Sex: Female

DRUGS (1)
  1. TISSUCOL DUO 500, WEEFSELLIJM [Suspect]
     Indication: WOUND CLOSURE
     Dates: start: 20100414, end: 20100414

REACTIONS (1)
  - Seroma [Recovered/Resolved]
